FAERS Safety Report 6109401-7 (Version None)
Quarter: 2009Q1

REPORT INFORMATION
  Report Type: 
  Country: None (occurrence: None)
  Receive Date: 20090310
  Receipt Date: 20090306
  Transmission Date: 20090719
  Serious: Yes (Disabling)
  Sender: FDA-Public Use
  Company Number: B0534900A

PATIENT
  Age: 68 Year
  Sex: Male
  Weight: 75 kg

DRUGS (12)
  1. ARRANON [Suspect]
     Dosage: 1500MGM2 CYCLIC
     Route: 042
     Dates: start: 20080116, end: 20080120
  2. MITOXANTRONE [Concomitant]
     Dates: start: 20080207, end: 20080210
  3. ETOPOSIDE [Concomitant]
     Dates: start: 20080207, end: 20080210
  4. CYLOCIDE [Concomitant]
     Dates: start: 20080207, end: 20080210
  5. CHEMOTHERAPY [Concomitant]
     Route: 065
     Dates: start: 20071116
  6. KYTRIL [Concomitant]
     Route: 042
     Dates: start: 20080116, end: 20080120
  7. BAKTAR [Concomitant]
     Indication: INFECTION PROPHYLAXIS
     Route: 048
     Dates: start: 20080116, end: 20080120
  8. FLUCONAZOLE [Concomitant]
     Indication: INFECTION PROPHYLAXIS
     Route: 042
     Dates: start: 20080116, end: 20080120
  9. GASTER [Concomitant]
     Indication: GASTRITIS
     Route: 048
     Dates: start: 20080116, end: 20080120
  10. ZOVIRAX [Concomitant]
     Indication: INFECTION PROPHYLAXIS
     Route: 048
     Dates: start: 20080116, end: 20080120
  11. CIPROXAN [Concomitant]
     Indication: INFECTION PROPHYLAXIS
     Route: 048
     Dates: start: 20080116, end: 20080120
  12. LIVACT [Concomitant]
     Indication: HEPATIC CIRRHOSIS
     Route: 048
     Dates: start: 20080116, end: 20080120

REACTIONS (1)
  - MEMORY IMPAIRMENT [None]
